FAERS Safety Report 10259084 (Version 2)
Quarter: 2014Q2

REPORT INFORMATION
  Report Type: Spontaneous
  Country: US (occurrence: US)
  Receive Date: 20140625
  Receipt Date: 20140625
  Transmission Date: 20141212
  Serious: Yes (Other)
  Sender: FDA-Public Use
  Company Number: US-ASTELLAS-2013US010935

PATIENT
  Age: 83 Year
  Sex: Male

DRUGS (3)
  1. VESICARE [Suspect]
     Indication: HYPERTONIC BLADDER
     Route: 048
  2. VESICARE [Suspect]
     Route: 048
     Dates: start: 20130521, end: 20131003
  3. VESICARE [Suspect]
     Route: 048
     Dates: start: 20131101

REACTIONS (3)
  - Wrong technique in drug usage process [Unknown]
  - Urinary retention [Recovered/Resolved]
  - Back pain [Recovered/Resolved]
